FAERS Safety Report 4889492-1 (Version None)
Quarter: 2006Q1

REPORT INFORMATION
  Report Type: 
  Country: None (occurrence: None)
  Receive Date: 20060124
  Receipt Date: 20060112
  Transmission Date: 20060701
  Serious: Yes (Disabling)
  Sender: FDA-Public Use
  Company Number: JP-BRISTOL-MYERS SQUIBB COMPANY-13244090

PATIENT
  Age: 49 Year
  Sex: Male

DRUGS (2)
  1. TAXOL [Suspect]
     Indication: GASTRIC CANCER
     Route: 042
     Dates: start: 20051206, end: 20051206
  2. FURTULON [Concomitant]
     Route: 048

REACTIONS (1)
  - CEREBRAL INFARCTION [None]
